FAERS Safety Report 4491527-5 (Version None)
Quarter: 2004Q4

REPORT INFORMATION
  Report Type: 
  Country: None (occurrence: None)
  Receive Date: 20041101
  Receipt Date: 20041018
  Transmission Date: 20050328
  Serious: Yes (Other)
  Sender: FDA-Public Use
  Company Number: 2004079982

PATIENT
  Age: 55 Year
  Sex: Male

DRUGS (6)
  1. ZELDOX [Suspect]
     Indication: AGGRESSION
     Dosage: 40 MG (40 MG, 1 IN 1 D), ORAL
     Route: 048
  2. ZELDOX [Suspect]
     Indication: DEPRESSION
     Dosage: 40 MG (40 MG, 1 IN 1 D), ORAL
     Route: 048
  3. ZELDOX [Suspect]
     Indication: IRRITABILITY
     Dosage: 40 MG (40 MG, 1 IN 1 D), ORAL
     Route: 048
  4. FLUOXETINE [Concomitant]
  5. PAROXETINE HCL [Concomitant]
  6. BROMAZEPAM (BROMAZEPAM) [Concomitant]

REACTIONS (6)
  - ABDOMINAL PAIN UPPER [None]
  - DIARRHOEA [None]
  - DIZZINESS [None]
  - NEUROLEPTIC MALIGNANT SYNDROME [None]
  - RASH [None]
  - VISUAL DISTURBANCE [None]
